FAERS Safety Report 22287677 (Version 1)
Quarter: 2023Q2

REPORT INFORMATION
  Report Type: Spontaneous
  Country: US (occurrence: US)
  Receive Date: 20230505
  Receipt Date: 20230505
  Transmission Date: 20230722
  Serious: No
  Sender: FDA-Public Use
  Company Number: US-RECORDATI RARE DISEASE INC.-2022006458

PATIENT

DRUGS (2)
  1. CYSTADANE [Suspect]
     Active Substance: BETAINE
     Indication: Blood homocysteine increased
     Dosage: 3 GRAM, BID
     Route: 048
     Dates: start: 2022, end: 2022
  2. CYSTADANE [Suspect]
     Active Substance: BETAINE
     Dosage: DOSE REDUCED TO HALF DOSE (3 GRAM PER DAY)
     Route: 048
     Dates: start: 2022

REACTIONS (2)
  - Tremor [Recovering/Resolving]
  - Mood swings [Unknown]

NARRATIVE: CASE EVENT DATE: 20220101
